FAERS Safety Report 21440981 (Version 6)
Quarter: 2023Q1

REPORT INFORMATION
  Report Type: Report from Study
  Country: US (occurrence: US)
  Receive Date: 20221011
  Receipt Date: 20230328
  Transmission Date: 20230418
  Serious: Yes (Hospitalization)
  Sender: FDA-Public Use
  Company Number: US-002147023-NVSC2022US229312

PATIENT
  Sex: Female

DRUGS (4)
  1. ENTRESTO [Suspect]
     Active Substance: SACUBITRIL\VALSARTAN
     Indication: Product used for unknown indication
     Dosage: UNK, (STARTED APPROX 2 YEARS AGO)
     Route: 065
  2. METOPROLOL [Suspect]
     Active Substance: METOPROLOL
     Indication: Product used for unknown indication
     Dosage: UNK
     Route: 065
  3. ELIQUIS [Suspect]
     Active Substance: APIXABAN
     Indication: Product used for unknown indication
     Dosage: UNK
     Route: 065
  4. SINGULAIR [Concomitant]
     Active Substance: MONTELUKAST SODIUM
     Indication: Product used for unknown indication
     Dosage: UNK
     Route: 065

REACTIONS (10)
  - Hepatic haemorrhage [Unknown]
  - Asthma [Unknown]
  - Cardiac disorder [Unknown]
  - Abdominal pain upper [Unknown]
  - Somnolence [Unknown]
  - Arthritis [Unknown]
  - Memory impairment [Unknown]
  - Concomitant disease aggravated [Unknown]
  - Fatigue [Unknown]
  - Inappropriate schedule of product administration [Unknown]
